FAERS Safety Report 7669421-8 (Version None)
Quarter: 2011Q3

REPORT INFORMATION
  Report Type: 
  Country: None (occurrence: None)
  Receive Date: 20110808
  Receipt Date: 20110727
  Transmission Date: 20111222
  Serious: No
  Sender: FDA-Public Use
  Company Number: US-B.I. PHARMACEUTICALS,INC./RIDGEFIELD-2011-BP-18726BP

PATIENT
  Age: 62 Year
  Sex: Female
  Weight: 4.55 kg

DRUGS (2)
  1. MELOXICAM [Suspect]
     Route: 031
     Dates: start: 20110727, end: 20110727
  2. MAXITROL [Concomitant]

REACTIONS (2)
  - OCULAR HYPERAEMIA [None]
  - CONJUNCTIVITIS [None]
